FAERS Safety Report 23301335 (Version 1)
Quarter: 2023Q4

REPORT INFORMATION
  Report Type: Spontaneous
  Country: US (occurrence: US)
  Receive Date: 20231215
  Receipt Date: 20231215
  Transmission Date: 20240110
  Serious: Yes (Other)
  Sender: FDA-Public Use
  Company Number: US-HIKMA PHARMACEUTICALS USA INC.-US-H14001-23-67736

PATIENT
  Age: 70 Year
  Sex: Male

DRUGS (1)
  1. ROPIVACAINE [Suspect]
     Active Substance: ROPIVACAINE
     Indication: Nerve block
     Dosage: UNK
     Route: 065

REACTIONS (1)
  - Anaphylactic reaction [Unknown]
